FAERS Safety Report 4682655-X (Version None)
Quarter: 2005Q2

REPORT INFORMATION
  Report Type: 
  Country: None (occurrence: None)
  Receive Date: 20050606
  Receipt Date: 20050322
  Transmission Date: 20051028
  Serious: Yes (Life-Threatening)
  Sender: FDA-Public Use
  Company Number: 2005JP000554

PATIENT
  Age: 96 Year
  Sex: Female
  Weight: 40 kg

DRUGS (2)
  1. CEFAMEZIN [Suspect]
     Indication: PROPHYLAXIS
     Route: 065
  2. BUPIVACAINE [Concomitant]
     Route: 065

REACTIONS (10)
  - ANAPHYLACTIC SHOCK [None]
  - BLOOD PRESSURE SYSTOLIC DECREASED [None]
  - ELECTROCARDIOGRAM ST SEGMENT ELEVATION [None]
  - ERYTHEMA [None]
  - HISTAMINE LEVEL INCREASED [None]
  - HYPERHIDROSIS [None]
  - HYPOTENSION [None]
  - LOSS OF CONSCIOUSNESS [None]
  - PRURITUS [None]
  - VENTRICULAR ARRHYTHMIA [None]
